FAERS Safety Report 21166662 (Version 1)
Quarter: 2022Q3

REPORT INFORMATION
  Report Type: Spontaneous
  Country: US (occurrence: None)
  Receive Date: 20220802
  Receipt Date: 20220802
  Transmission Date: 20221027
  Serious: Yes (Hospitalization)
  Sender: FDA-Public Use
  Company Number: None

PATIENT
  Age: 56 Year
  Sex: Female
  Weight: 63.96 kg

DRUGS (12)
  1. LENALIDOMIDE [Suspect]
     Active Substance: LENALIDOMIDE
     Indication: Plasma cell myeloma
     Dosage: 15MG DAILY 14 DAY ORAL- 21 DAY CYCLE?
     Route: 048
  2. ARIPIPRAZOLE [Concomitant]
     Active Substance: ARIPIPRAZOLE
  3. ASPIRIN [Concomitant]
     Active Substance: ASPIRIN
  4. BENZTROPINE [Concomitant]
     Active Substance: BENZTROPINE
  5. DEXAMETHASONE [Concomitant]
     Active Substance: DEXAMETHASONE
  6. LORAZEPAM [Concomitant]
     Active Substance: LORAZEPAM
  7. LEVETIRACETAM [Concomitant]
     Active Substance: LEVETIRACETAM
  8. OXYCODONE [Concomitant]
     Active Substance: OXYCODONE
  9. PROPRANOLOL [Concomitant]
     Active Substance: PROPRANOLOL HYDROCHLORIDE
  10. ROSUVASTATIN [Concomitant]
     Active Substance: ROSUVASTATIN
  11. VALACYCLOVIR [Concomitant]
     Active Substance: VALACYCLOVIR HYDROCHLORIDE
  12. ZOFRAN [Concomitant]
     Active Substance: ONDANSETRON HYDROCHLORIDE

REACTIONS (4)
  - Fatigue [None]
  - Asthenia [None]
  - Seizure [None]
  - Hypokalaemia [None]

NARRATIVE: CASE EVENT DATE: 20220721
